FAERS Safety Report 4450407-1 (Version None)
Quarter: 2004Q3

REPORT INFORMATION
  Report Type: 
  Country: None (occurrence: None)
  Receive Date: 20040914
  Receipt Date: 20040902
  Transmission Date: 20050211
  Serious: Yes (Other)
  Sender: FDA-Public Use
  Company Number: HQWYE829203SEP04

PATIENT
  Age: 32 Year
  Sex: Female

DRUGS (1)
  1. TRIGYNON (LEVONORGESTREL/ETHINYL ESTRADIOL, TABLET) [Suspect]
     Indication: ORAL CONTRACEPTION
     Dosage: 1 TABLET 1X PER  1DAY, ORAL
     Route: 048

REACTIONS (1)
  - DEEP VEIN THROMBOSIS [None]
